FAERS Safety Report 9758327 (Version 2)
Quarter: 2013Q4

REPORT INFORMATION
  Report Type: Report from Study
  Country: LB (occurrence: LB)
  Receive Date: 20131216
  Receipt Date: 20131216
  Transmission Date: 20140711
  Serious: Yes (Hospitalization)
  Sender: FDA-Public Use
  Company Number: LB-SA-2013SA120513

PATIENT
  Age: 68 Year
  Sex: Female
  Weight: 65 kg

DRUGS (15)
  1. INSULIN GLARGINE [Suspect]
     Indication: TYPE 2 DIABETES MELLITUS
     Route: 065
     Dates: start: 20130918
  2. INSULIN GLULISINE [Suspect]
     Indication: TYPE 2 DIABETES MELLITUS
     Route: 058
     Dates: start: 20130918
  3. LANTUS SOLOSTAR [Concomitant]
  4. SOLOSTAR [Concomitant]
  5. APIDRA [Concomitant]
  6. ADALAT [Concomitant]
     Dosage: 60 LA
  7. PLAVIX [Concomitant]
  8. DILATREND [Concomitant]
  9. IBUPROFEN [Concomitant]
     Dosage: 4.5 TED
  10. FLUDEX - SLOW RELEASE [Concomitant]
  11. PROTON PUMP INHIBITORS [Concomitant]
  12. TRENTAL [Concomitant]
  13. VENOFER [Concomitant]
     Dosage: IN 250 ML SALINE
  14. ALPHA-DEPRESSAN I.V. [Concomitant]
  15. ERYTHROPOIETIN [Concomitant]

REACTIONS (1)
  - Sepsis [Recovered/Resolved]
